FAERS Safety Report 8333694-9 (Version None)
Quarter: 2012Q1

REPORT INFORMATION
  Report Type: 
  Country: None (occurrence: None)
  Receive Date: 20120329
  Receipt Date: 20100707
  Transmission Date: 20120608
  Serious: Yes (Hospitalization)
  Sender: FDA-Public Use
  Company Number: PHHY2010US45255

PATIENT
  Age: 52 Year
  Sex: Female

DRUGS (18)
  1. PROAIR (FLUTICASONE PROPIONATE) [Concomitant]
  2. MILNACIPRAN HYDROCHLORIDE (MILNACIPRAN HYDROCHLORIDE) TABLET [Suspect]
     Indication: FIBROMYALGIA
     Dosage: 12.5 MG, QD, ORAL, 12.5 MG, BID, ORAL, 25 MG, BID, ORAL, 50 MG, BID, ORAL
     Route: 048
     Dates: start: 20100513, end: 20100514
  3. MILNACIPRAN HYDROCHLORIDE (MILNACIPRAN HYDROCHLORIDE) TABLET [Suspect]
     Indication: FIBROMYALGIA
     Dosage: 12.5 MG, QD, ORAL, 12.5 MG, BID, ORAL, 25 MG, BID, ORAL, 50 MG, BID, ORAL
     Route: 048
     Dates: start: 20100515, end: 20100518
  4. MILNACIPRAN HYDROCHLORIDE (MILNACIPRAN HYDROCHLORIDE) TABLET [Suspect]
     Indication: FIBROMYALGIA
     Dosage: 12.5 MG, QD, ORAL, 12.5 MG, BID, ORAL, 25 MG, BID, ORAL, 50 MG, BID, ORAL
     Route: 048
     Dates: start: 20100512, end: 20100512
  5. MILNACIPRAN HYDROCHLORIDE (MILNACIPRAN HYDROCHLORIDE) TABLET [Suspect]
     Indication: FIBROMYALGIA
     Dosage: 12.5 MG, QD, ORAL, 12.5 MG, BID, ORAL, 25 MG, BID, ORAL, 50 MG, BID, ORAL
     Route: 048
     Dates: start: 20100519, end: 20100615
  6. ZOMIG [Concomitant]
  7. BENTYL [Concomitant]
  8. LAMISIL [Suspect]
     Indication: ONYCHOMYCOSIS
     Dates: end: 20100615
  9. WELCHOL [Concomitant]
  10. TORADOL [Concomitant]
  11. MELATONIN (MELATONIN) [Concomitant]
  12. VITAMIN D [Concomitant]
  13. TOPAMAX [Concomitant]
  14. VOLTAREN (DICLOFENAC DIETHYLAMINE) [Concomitant]
  15. FLONASE [Concomitant]
  16. DARVOCET [Concomitant]
  17. ACIPHEX [Concomitant]
  18. ZANAFLEX [Concomitant]

REACTIONS (6)
  - HEPATIC CYST [None]
  - ALANINE AMINOTRANSFERASE INCREASED [None]
  - BLOOD ALKALINE PHOSPHATASE INCREASED [None]
  - HEPATITIS [None]
  - MALAISE [None]
  - ASPARTATE AMINOTRANSFERASE INCREASED [None]
